FAERS Safety Report 9745435 (Version 2)
Quarter: 2014Q1

REPORT INFORMATION
  Report Type: Spontaneous
  Country: GB (occurrence: GB)
  Receive Date: 20131211
  Receipt Date: 20140314
  Transmission Date: 20141002
  Serious: Yes (Disabling)
  Sender: FDA-Public Use
  Company Number: PHHY2013GB144362

PATIENT
  Age: 50 Year
  Sex: Male
  Weight: 100 kg

DRUGS (29)
  1. BUDESONIDE [Suspect]
     Dates: start: 20130806
  2. ALLOPURINOL [Concomitant]
     Dates: start: 20130805
  3. ATORVASTATIN [Concomitant]
     Dates: start: 20130805
  4. CITALOPRAM [Concomitant]
     Dates: start: 20130805
  5. CITALOPRAM [Concomitant]
     Dates: start: 20130805
  6. CLONAZEPAM [Concomitant]
     Dates: start: 20130805
  7. FUROSEMIDE [Concomitant]
     Dates: start: 20130805
  8. GLYCERYL TRINITRATE [Concomitant]
     Dates: start: 20130805, end: 20131121
  9. OMEPRAZOLE [Concomitant]
     Dates: start: 20130805
  10. OMEPRAZOLE [Concomitant]
     Dates: start: 20130805
  11. RAMIPRIL [Concomitant]
     Dates: start: 20130805
  12. SALMETEROL [Concomitant]
     Dates: start: 20130805
  13. VITAMIN B [Concomitant]
     Dates: start: 20130805
  14. CARBOMER [Concomitant]
     Dates: start: 20130806, end: 20130903
  15. VENTOLIN [Concomitant]
     Dates: start: 20130806
  16. ASPIRIN [Concomitant]
     Dates: start: 20130814
  17. BISOPROLOL [Concomitant]
     Dates: start: 20130814
  18. SPIRONOLACTONE [Concomitant]
     Dates: start: 20130814
  19. FINASTERIDE [Concomitant]
     Dates: start: 20130820
  20. HYPROMELLOSE [Concomitant]
     Dates: start: 20130820
  21. TAMSULOSIN HYDROCHLORIDE [Concomitant]
     Dates: start: 20130820
  22. THIAMINE [Concomitant]
     Dates: start: 20130820
  23. LACRI-LUBE [Concomitant]
     Dates: start: 20130823, end: 20130920
  24. AMOXICILLIN [Concomitant]
     Dates: start: 20130906, end: 20130922
  25. EMOLLIENTS [Concomitant]
     Dates: start: 20130924, end: 20131113
  26. PREDNISOLONE [Concomitant]
     Dates: start: 20131003, end: 20131013
  27. PREDNISOLONE [Concomitant]
     Dates: start: 20131021, end: 20131031
  28. CETIRIZINE [Concomitant]
     Dates: start: 20131105
  29. FLUTICASONE [Concomitant]
     Dates: start: 20131125

REACTIONS (4)
  - General physical health deterioration [Recovering/Resolving]
  - Breath odour [Recovering/Resolving]
  - Dyspnoea [Recovering/Resolving]
  - Chronic obstructive pulmonary disease [Recovering/Resolving]
